FAERS Safety Report 6428235-7 (Version None)
Quarter: 2009Q4

REPORT INFORMATION
  Report Type: 
  Country: None (occurrence: None)
  Receive Date: 20091021
  Receipt Date: 20091008
  Transmission Date: 20100525
  Serious: Yes (Death)
  Sender: FDA-Public Use
  Company Number: THYM-1001257

PATIENT
  Age: 24 Year
  Sex: Female
  Weight: 45 kg

DRUGS (4)
  1. THYMOGLOBULIN [Suspect]
     Indication: BONE MARROW CONDITIONING REGIMEN
     Dosage: 1.25 MG/KG, QD, INTRAVENOUS
     Route: 042
     Dates: start: 20090827, end: 20090830
  2. FLUDARABINE PHOSPHATE [Concomitant]
  3. CYCLOPHOSPHAMIDE [Concomitant]
  4. HYDROCORTISONE SODIUM PHOSPHATE (HYDROCORTISONE SODIUM PHOSPHATE) [Concomitant]

REACTIONS (2)
  - ANTI-PLATELET ANTIBODY [None]
  - CEREBRAL HAEMORRHAGE [None]
